FAERS Safety Report 19749811 (Version 1)
Quarter: 2021Q3

REPORT INFORMATION
  Report Type: Spontaneous
  Country: US (occurrence: US)
  Receive Date: 20210826
  Receipt Date: 20210826
  Transmission Date: 20211014
  Serious: No
  Sender: FDA-Public Use
  Company Number: US-BAYER-2021-196684

PATIENT
  Age: 31 Year
  Sex: Female
  Weight: 116.6 kg

DRUGS (1)
  1. MIRENA [Suspect]
     Active Substance: LEVONORGESTREL
     Dosage: 20 ?G, CONT
     Route: 015
     Dates: start: 20210616, end: 20210621

REACTIONS (3)
  - Device expulsion [Recovered/Resolved]
  - Gait disturbance [None]
  - Procedural pain [None]

NARRATIVE: CASE EVENT DATE: 20210617
